FAERS Safety Report 8082541 (Version 16)
Quarter: 2013Q4

REPORT INFORMATION
  Report Type: Spontaneous
  Country: US (occurrence: US)
  Receive Date: 20110809
  Receipt Date: 20131120
  Transmission Date: 20140711
  Serious: Yes (Death, Other)
  Sender: FDA-Public Use
  Company Number: PHEH2011US00518

PATIENT
  Age: 87 Year
  Sex: Female

DRUGS (14)
  1. AREDIA [Suspect]
     Route: 042
  2. ZOMETA [Suspect]
     Indication: METASTASES TO BONE
     Dosage: 4 MG, QMO
     Route: 042
  3. ZOMETA [Suspect]
     Indication: METASTASES TO BREAST
  4. KEPPRA [Suspect]
  5. ATENOLOL [Concomitant]
  6. NIFEDIPINE [Concomitant]
  7. MIRALAX [Concomitant]
  8. QUINAPRIL [Concomitant]
  9. IBUPROFEN [Concomitant]
  10. LEVAQUIN [Concomitant]
  11. METHYLDOPA [Concomitant]
  12. ISOSORBIDE [Concomitant]
     Dosage: 20 MG, ONCE/SINGLE
  13. ARIMIDEX [Concomitant]
  14. DARVOCET                           /00220901/ [Concomitant]
     Dosage: 100 MG, PRN

REACTIONS (142)
  - Death [Fatal]
  - Osteonecrosis of jaw [Unknown]
  - Pain [Unknown]
  - Infection [Unknown]
  - Deformity [Unknown]
  - Injury [Unknown]
  - Emotional distress [Unknown]
  - Anxiety [Unknown]
  - Disability [Unknown]
  - Spinal osteoarthritis [Unknown]
  - Metastases to spine [Unknown]
  - Atelectasis [Unknown]
  - Metastases to lymph nodes [Unknown]
  - Haemoptysis [Unknown]
  - Pleural fibrosis [Unknown]
  - Pleural effusion [Unknown]
  - Soft tissue mass [Unknown]
  - Cervical spinal stenosis [Unknown]
  - Aortic calcification [Unknown]
  - Lung hyperinflation [Unknown]
  - Osteoarthritis [Unknown]
  - Intervertebral disc space narrowing [Unknown]
  - Spondylolisthesis [Unknown]
  - Fibrosis [Unknown]
  - Osteosclerosis [Unknown]
  - Bone lesion [Unknown]
  - Cardiac murmur [Unknown]
  - Sciatica [Unknown]
  - Cerebral atrophy [Unknown]
  - Cerebral small vessel ischaemic disease [Unknown]
  - Toothache [Unknown]
  - Metastases to lung [Unknown]
  - Metastases to abdominal cavity [Unknown]
  - Arthritis [Unknown]
  - Rhinitis [Unknown]
  - Urinary incontinence [Unknown]
  - Convulsion [Unknown]
  - Atrioventricular block first degree [Unknown]
  - Essential hypertension [Unknown]
  - Epilepsy [Unknown]
  - Sinus bradycardia [Unknown]
  - Vision blurred [Unknown]
  - Polyp [Unknown]
  - Angina pectoris [Unknown]
  - Fistula [Unknown]
  - Amnesia [Unknown]
  - Duodenal ulcer [Unknown]
  - Dementia [Unknown]
  - Hypertension [Unknown]
  - Malnutrition [Unknown]
  - Anaemia [Unknown]
  - Rectal haemorrhage [Unknown]
  - Diverticulum [Unknown]
  - Haemorrhoids [Unknown]
  - Gastrooesophageal reflux disease [Unknown]
  - Gastric ulcer [Unknown]
  - Heart rate irregular [Unknown]
  - Fall [Unknown]
  - Palatal disorder [Unknown]
  - Exposed bone in jaw [Unknown]
  - Emphysema [Unknown]
  - Bronchiectasis [Unknown]
  - Intervertebral disc degeneration [Unknown]
  - Lumbar spinal stenosis [Unknown]
  - Syncope [Unknown]
  - Hydrocephalus [Unknown]
  - Tremor [Unknown]
  - Apnoea [Unknown]
  - Sinusitis [Unknown]
  - Dyskinesia [Unknown]
  - Loss of consciousness [Unknown]
  - Cerebral disorder [Unknown]
  - Hypotension [Unknown]
  - Blood pressure fluctuation [Unknown]
  - Tooth infection [Unknown]
  - Hyperkalaemia [Unknown]
  - Gastrointestinal haemorrhage [Unknown]
  - Nasal cavity mass [Unknown]
  - Cataract [Unknown]
  - Obstruction gastric [Unknown]
  - Hypoacusis [Unknown]
  - Osteopenia [Unknown]
  - Depression [Unknown]
  - Deafness neurosensory [Unknown]
  - Cerumen impaction [Unknown]
  - Asthma [Unknown]
  - Spinal cord compression [Unknown]
  - Haemangioma [Unknown]
  - Chronic obstructive pulmonary disease [Unknown]
  - Tooth loss [Unknown]
  - Gingival bleeding [Unknown]
  - Dementia Alzheimer^s type [Unknown]
  - Cardiomegaly [Unknown]
  - Vaginal prolapse [Unknown]
  - Carotid arteriosclerosis [Unknown]
  - Lung infiltration [Unknown]
  - Aortic arteriosclerosis [Unknown]
  - Pulmonary mass [Unknown]
  - Presbyoesophagus [Unknown]
  - Dehydration [Unknown]
  - Arterial disorder [Unknown]
  - Pneumonitis [Unknown]
  - Maculopathy [Unknown]
  - Cachexia [Unknown]
  - Ecchymosis [Unknown]
  - Retinal dystrophy [Unknown]
  - Retinal degeneration [Unknown]
  - Macular degeneration [Unknown]
  - Gout [Unknown]
  - Blindness [Unknown]
  - Rheumatoid arthritis [Unknown]
  - Metastases to bone [Unknown]
  - Metastases to central nervous system [Unknown]
  - Bone marrow oedema [Unknown]
  - Arthropathy [Unknown]
  - Memory impairment [Unknown]
  - Arthralgia [Unknown]
  - Dizziness [Unknown]
  - Confusional state [Unknown]
  - Cough [Unknown]
  - Astigmatism [Unknown]
  - Nausea [Unknown]
  - Chest pain [Unknown]
  - Hypoaesthesia [Unknown]
  - Musculoskeletal stiffness [Unknown]
  - Neck pain [Unknown]
  - Dyspnoea [Unknown]
  - Asthenia [Unknown]
  - Abdominal pain [Unknown]
  - Muscular weakness [Unknown]
  - Lethargy [Unknown]
  - Headache [Unknown]
  - Back pain [Unknown]
  - Vomiting [Unknown]
  - Hypokalaemia [Unknown]
  - Hyponatraemia [Unknown]
  - Constipation [Unknown]
  - Diarrhoea [Unknown]
  - Rash [Unknown]
  - Gait disturbance [Unknown]
  - Faecal incontinence [Unknown]
  - Decreased appetite [Unknown]
